FAERS Safety Report 8801390 (Version 1)
Quarter: 2012Q4

REPORT INFORMATION
  Report Type: 
  Country: US (occurrence: US)
  Receive Date: 20120921
  Receipt Date: 20120921
  Transmission Date: 20130627
  Serious: No
  Sender: FDA-Public Use
  Company Number: US-ASTRAZENECA-2012SE72245

PATIENT
  Age: 80 Year
  Sex: Female
  Weight: 55.3 kg

DRUGS (2)
  1. SYMBICORT [Suspect]
     Indication: ASTHMA
     Dosage: 80/4.5 MCG, BID
     Route: 055
     Dates: start: 2009
  2. 16 CONCOMITANT MEDS [Concomitant]

REACTIONS (2)
  - Dyspnoea [Recovered/Resolved]
  - Circumstance or information capable of leading to medication error [Unknown]
